FAERS Safety Report 8510862 (Version 3)
Quarter: 2012Q4

REPORT INFORMATION
  Report Type: 
  Country: FR (occurrence: FR)
  Receive Date: 20120413
  Receipt Date: 20121008
  Transmission Date: 20130627
  Serious: Yes (Other)
  Sender: FDA-Public Use
  Company Number: FR-PFIZER INC-2011240805

PATIENT
  Age: 87 Year
  Sex: Female

DRUGS (14)
  1. DALACINE [Suspect]
     Indication: STAPHYLOCOCCAL INFECTION
     Dosage: 900 mg, 2x/day
     Dates: start: 20091010, end: 20091106
  2. VANCOMYCIN [Concomitant]
     Dosage: UNK
     Dates: start: 20090921, end: 20091010
  3. GENTAMYCIN [Concomitant]
     Dosage: UNK
     Dates: start: 20090921, end: 20091010
  4. TARDYFERON [Concomitant]
     Dosage: 80 mg, 1x/day
  5. LOVENOX [Concomitant]
     Dosage: 0.4 ml, 1x/day
  6. DOLIPRANE [Concomitant]
     Dosage: 2 DF, 3x/day
  7. CETORNAN [Concomitant]
     Dosage: 1 DF, 2x/day
  8. SEVREDOL [Concomitant]
     Dosage: 1 DF, 6 times a day as needed
  9. ZOPICLONE [Concomitant]
     Dosage: 7.5 mg, 1x/day, as needed
  10. CORTANCYL [Concomitant]
     Indication: RHEUMATOID ARTHRITIS
     Dosage: 0.5 DF, 2x/day
  11. FORLAX [Concomitant]
     Dosage: 2 DF, 2x/day
  12. DEXERYL ^PASCUAL^ [Concomitant]
     Dosage: once a day
  13. KARDEGIC [Concomitant]
     Dosage: 75 mg, 1x/day
  14. INEXIUM [Concomitant]
     Dosage: 20 mg, 1x/day

REACTIONS (3)
  - Toxic skin eruption [Recovered/Resolved]
  - Eosinophilia [Recovered/Resolved]
  - Skin candida [Recovered/Resolved]
